FAERS Safety Report 4863403-7 (Version None)
Quarter: 2005Q4

REPORT INFORMATION
  Report Type: 
  Country: None (occurrence: None)
  Receive Date: 20051222
  Receipt Date: 20041206
  Transmission Date: 20060501
  Serious: No
  Sender: FDA-Public Use
  Company Number: US-GLAXOSMITHKLINE-A0536549A

PATIENT
  Age: 30 Year
  Sex: Female

DRUGS (4)
  1. FLONASE [Suspect]
     Indication: RHINITIS
     Dosage: 1SPR PER DAY
     Route: 045
  2. AUGMENTIN [Concomitant]
  3. ALBUTEROL [Concomitant]
  4. UNKNOWN MEDICATION [Concomitant]

REACTIONS (5)
  - DRUG EXPOSURE DURING PREGNANCY [None]
  - DRUG INEFFECTIVE [None]
  - EPISTAXIS [None]
  - NASAL DISCOMFORT [None]
  - PHARMACEUTICAL PRODUCT COMPLAINT [None]
